FAERS Safety Report 14556172 (Version 1)
Quarter: 2018Q1

REPORT INFORMATION
  Report Type: Spontaneous
  Country: GB (occurrence: GB)
  Receive Date: 20180221
  Receipt Date: 20180221
  Transmission Date: 20180509
  Serious: Yes (Hospitalization)
  Sender: FDA-Public Use
  Company Number: GB-AMGEN-GBRSP2018023543

PATIENT
  Age: 83 Year
  Sex: Female

DRUGS (6)
  1. NICORANDIL [Suspect]
     Active Substance: NICORANDIL
     Indication: PRODUCT USED FOR UNKNOWN INDICATION
     Dosage: UNK
     Route: 065
  2. PROCORALAN [Suspect]
     Active Substance: IVABRADINE
     Dosage: 5 MG, BID
     Route: 048
     Dates: start: 20120104
  3. BISOPROLOL [Suspect]
     Active Substance: BISOPROLOL
     Indication: PRODUCT USED FOR UNKNOWN INDICATION
     Dosage: UNK
     Route: 065
  4. PROCORALAN [Suspect]
     Active Substance: IVABRADINE
     Indication: PRODUCT USED FOR UNKNOWN INDICATION
     Dosage: 5 MG, BID
     Route: 048
     Dates: start: 201110, end: 20120102
  5. PROCORALAN [Suspect]
     Active Substance: IVABRADINE
     Dosage: 15 MG, QD
     Route: 048
     Dates: start: 20120103, end: 20120103
  6. MONOMIL [Concomitant]
     Active Substance: ISOSORBIDE MONONITRATE
     Indication: PRODUCT USED FOR UNKNOWN INDICATION
     Dosage: UNK

REACTIONS (6)
  - Heart rate decreased [Recovered/Resolved]
  - Overdose [Unknown]
  - Incorrect dose administered [Recovered/Resolved]
  - Blood pressure decreased [Recovered/Resolved]
  - Dizziness [Recovered/Resolved]
  - Cardiac failure [Unknown]

NARRATIVE: CASE EVENT DATE: 20111230
